FAERS Safety Report 10897016 (Version 1)
Quarter: 2015Q1

REPORT INFORMATION
  Report Type: Spontaneous
  Country: US (occurrence: US)
  Receive Date: 20150309
  Receipt Date: 20150309
  Transmission Date: 20150721
  Serious: Yes (Hospitalization)
  Sender: FDA-Public Use
  Company Number: US-TARO PHARMACEUTICALS U.S.A., INC-2015SUN00676

PATIENT

DRUGS (1)
  1. WARFARIN [Suspect]
     Active Substance: WARFARIN
     Indication: VERTEBRAL ARTERY DISSECTION
     Dosage: UNK
     Route: 065

REACTIONS (5)
  - Aphasia [Recovering/Resolving]
  - Fall [Unknown]
  - Hemiparesis [Recovering/Resolving]
  - Syncope [Recovering/Resolving]
  - Subdural haematoma [Recovering/Resolving]
